FAERS Safety Report 8392042-9 (Version None)
Quarter: 2012Q2

REPORT INFORMATION
  Report Type: 
  Country: None (occurrence: None)
  Receive Date: 20120529
  Receipt Date: 20120515
  Transmission Date: 20120825
  Serious: Yes (Disabling)
  Sender: FDA-Public Use
  Company Number: GB-MYLANLABS-2012S1010026

PATIENT
  Age: 71 Year
  Sex: Male
  Weight: 91 kg

DRUGS (5)
  1. LAXIDO [Concomitant]
     Indication: CONSTIPATION
     Dates: start: 20101028
  2. ASPIRIN [Concomitant]
     Indication: MYOCARDIAL ISCHAEMIA
     Route: 048
     Dates: start: 20041011
  3. VALSARTAN [Concomitant]
     Indication: MYOCARDIAL ISCHAEMIA
     Route: 048
     Dates: start: 20060228
  4. PRAVASTATIN [Concomitant]
     Indication: MYOCARDIAL ISCHAEMIA
     Route: 048
     Dates: start: 20090417
  5. LANSOPRAZOLE [Suspect]
     Indication: GASTROOESOPHAGEAL REFLUX DISEASE
     Route: 048
     Dates: start: 20081008, end: 20120320

REACTIONS (3)
  - CONDITION AGGRAVATED [None]
  - ABDOMINAL PAIN [None]
  - INTERMITTENT CLAUDICATION [None]
